FAERS Safety Report 18144319 (Version 1)
Quarter: 2020Q3

REPORT INFORMATION
  Report Type: Spontaneous
  Country: US (occurrence: US)
  Receive Date: 20200812
  Receipt Date: 20200812
  Transmission Date: 20201103
  Serious: Yes (Disabling, Other)
  Sender: FDA-Public Use
  Company Number: None

PATIENT
  Age: 60 Year
  Sex: Male
  Weight: 81.9 kg

DRUGS (6)
  1. ROSUVASTATIN CALCIUM. [Concomitant]
     Active Substance: ROSUVASTATIN CALCIUM
  2. ASSURED INSTANT HAND SANITIZER ALOE [Suspect]
     Active Substance: ALCOHOL
     Indication: COVID-19 PROPHYLAXIS
     Dosage: ?          OTHER FREQUENCY:HOURLY?;?
     Route: 061
     Dates: start: 20191201, end: 20200625
  3. PURELL ADVANCED HAND SANITIZER REFRESHING GEL [Suspect]
     Active Substance: ALCOHOL
  4. I?SOFTTO INSTANT HAND SANITIZER [Suspect]
     Active Substance: ALCOHOL
  5. LEVOTHYROXINE. [Concomitant]
     Active Substance: LEVOTHYROXINE
  6. COENZYME Q10 [Concomitant]
     Active Substance: DIETARY SUPPLEMENT\UBIDECARENONE

REACTIONS (2)
  - Renal disorder [None]
  - Poisoning [None]

NARRATIVE: CASE EVENT DATE: 20200528
